FAERS Safety Report 24935358 (Version 1)
Quarter: 2025Q1

REPORT INFORMATION
  Report Type: Other
  Country: GB (occurrence: GB)
  Receive Date: 20250206
  Receipt Date: 20250206
  Transmission Date: 20250409
  Serious: Yes (Other)
  Sender: MACLEODS
  Company Number: None

PATIENT

DRUGS (1)
  1. DIMETHYL FUMARATE [Suspect]
     Active Substance: DIMETHYL FUMARATE
     Indication: Relapsing multiple sclerosis
     Dosage: 240 MG TWICE A DAY
     Route: 065

REACTIONS (2)
  - Burn oesophageal [Not Recovered/Not Resolved]
  - Dyspepsia [Not Recovered/Not Resolved]
